FAERS Safety Report 24702529 (Version 1)
Quarter: 2024Q4

REPORT INFORMATION
  Report Type: Spontaneous
  Country: CZ (occurrence: CZ)
  Receive Date: 20241205
  Receipt Date: 20241205
  Transmission Date: 20250114
  Serious: Yes (Hospitalization)
  Sender: NOVARTIS
  Company Number: CZ-002147023-NVSC2024CZ231984

PATIENT
  Age: 75 Year

DRUGS (5)
  1. ASCIMINIB [Suspect]
     Active Substance: ASCIMINIB
     Indication: Philadelphia chromosome positive
     Dosage: 80 MG, QD (DAILY
     Route: 065
  2. ASCIMINIB [Suspect]
     Active Substance: ASCIMINIB
     Indication: Chronic myeloid leukaemia
     Dosage: 80 MG, QD (DAILY
     Route: 065
  3. ASCIMINIB [Suspect]
     Active Substance: ASCIMINIB
     Dosage: 80 MG, QD (DAILY
     Route: 065
  4. HYDROXYUREA [Concomitant]
     Active Substance: HYDROXYUREA
     Indication: Cytoreductive surgery
     Dosage: UNK
     Route: 065
  5. UNSPECIFIED INGREDIENT [Concomitant]
     Active Substance: UNSPECIFIED INGREDIENT
     Indication: Product used for unknown indication
     Dosage: UNK
     Route: 065

REACTIONS (5)
  - Diplopia [Recovering/Resolving]
  - Headache [Not Recovered/Not Resolved]
  - Decreased appetite [Unknown]
  - Asthenia [Unknown]
  - Balance disorder [Recovering/Resolving]
